FAERS Safety Report 9260252 (Version 1)
Quarter: 2013Q2

REPORT INFORMATION
  Report Type: Spontaneous
  Country: US (occurrence: US)
  Receive Date: 20130429
  Receipt Date: 20130429
  Transmission Date: 20140414
  Serious: No
  Sender: FDA-Public Use
  Company Number: US-PFIZER INC-2013133457

PATIENT
  Age: 61 Year
  Sex: Male
  Weight: 103 kg

DRUGS (2)
  1. LYRICA [Suspect]
     Indication: DIABETIC NEUROPATHY
     Dosage: 50 MG, 3X/DAY
     Dates: start: 201303
  2. LYRICA [Suspect]
     Dosage: 100 MG, UNK
     Dates: end: 201304

REACTIONS (1)
  - Pain in extremity [Recovered/Resolved]
